FAERS Safety Report 21938023 (Version 1)
Quarter: 2023Q1

REPORT INFORMATION
  Report Type: Report from Study
  Country: US (occurrence: US)
  Receive Date: 20230201
  Receipt Date: 20230201
  Transmission Date: 20230418
  Serious: No
  Sender: FDA-Public Use
  Company Number: US-INCYTE CORPORATION-2021IN005505

PATIENT

DRUGS (4)
  1. PEMIGATINIB [Suspect]
     Active Substance: PEMIGATINIB
     Indication: Cholangiocarcinoma
     Dosage: 13.5 MILLIGRAM
     Route: 048
     Dates: start: 202101, end: 2021
  2. PEMIGATINIB [Suspect]
     Active Substance: PEMIGATINIB
     Dosage: 9 MILLIGRAM
     Route: 048
     Dates: start: 2021, end: 2021
  3. PEMIGATINIB [Suspect]
     Active Substance: PEMIGATINIB
     Dosage: 4.5 MILLIGRAM
     Route: 048
     Dates: start: 2021
  4. PEMIGATINIB [Suspect]
     Active Substance: PEMIGATINIB
     Dosage: 4.5 MILLIGRAM, QAM (7 AM WITH FOOD)
     Route: 048
     Dates: start: 20210622

REACTIONS (9)
  - Product taste abnormal [Unknown]
  - Pruritus [Unknown]
  - Decreased appetite [Unknown]
  - Hair growth abnormal [Unknown]
  - Stomatitis [Unknown]
  - Alopecia [Unknown]
  - Nail disorder [Unknown]
  - Fatigue [Unknown]
  - Constipation [Unknown]

NARRATIVE: CASE EVENT DATE: 20210101
